FAERS Safety Report 10369809 (Version 1)
Quarter: 2014Q3

REPORT INFORMATION
  Report Type: Spontaneous
  Country: HU (occurrence: HU)
  Receive Date: 20140808
  Receipt Date: 20140808
  Transmission Date: 20150326
  Serious: Yes (Hospitalization, Other)
  Sender: FDA-Public Use
  Company Number: HU-ROCHE-1446224

PATIENT
  Age: 84 Year
  Sex: Female

DRUGS (6)
  1. AVASTIN [Suspect]
     Active Substance: BEVACIZUMAB
     Dosage: FORM STRENGTH: 25 MG/ML?DOSE: 1.25 MG/0.05 ML?LAST DOSE PRIOR TO SERIOUS ADVERSE EVENT: 22/JUL/2014
     Route: 050
     Dates: start: 20140722
  2. AVASTIN [Suspect]
     Active Substance: BEVACIZUMAB
     Dosage: FORM STRENGTH: 25 MG/ML?DOSE: 1.25 MG/0.05 ML?FREQUENCY: MONTHLY
     Route: 050
     Dates: start: 20140206, end: 20140206
  3. POVIDONE IODINE [Concomitant]
     Active Substance: POVIDONE-IODINE
  4. AVASTIN [Suspect]
     Active Substance: BEVACIZUMAB
     Indication: AGE-RELATED MACULAR DEGENERATION
     Dosage: FORM STRENGTH: 25 MG/ML?DOSE: 1.25 MG/0.05 ML?FREQUENCY: MONTHLY
     Route: 050
     Dates: start: 201309, end: 201309
  5. AVASTIN [Suspect]
     Active Substance: BEVACIZUMAB
     Dosage: FORM STRENGTH: 25 MG/ML?DOSE: 1.25 MG/0.05 ML?FREQUENCY: MONTHLY
     Route: 050
     Dates: start: 20131024, end: 20131024
  6. AVASTIN [Suspect]
     Active Substance: BEVACIZUMAB
     Dosage: FORM STRENGTH: 25 MG/ML?DOSE: 1.25 MG/0.05 ML?FREQUENCY: MONTHLY
     Route: 050
     Dates: start: 20131118, end: 20131118

REACTIONS (6)
  - Cataract [Not Recovered/Not Resolved]
  - Visual acuity reduced [Not Recovered/Not Resolved]
  - Inadequate aseptic technique in use of product [Unknown]
  - Endophthalmitis [Recovered/Resolved with Sequelae]
  - Off label use [Unknown]
  - Suspected transmission of an infectious agent via product [Unknown]

NARRATIVE: CASE EVENT DATE: 20140722
